FAERS Safety Report 15105688 (Version 1)
Quarter: 2018Q3

REPORT INFORMATION
  Report Type: Spontaneous
  Country: BR (occurrence: BR)
  Receive Date: 20180704
  Receipt Date: 20180704
  Transmission Date: 20181010
  Serious: Yes (Hospitalization, Other)
  Sender: FDA-Public Use
  Company Number: BR-AMGEN-BRASP2018088388

PATIENT
  Age: 64 Year
  Sex: Male
  Weight: 105 kg

DRUGS (10)
  1. ONDASETRON [Concomitant]
     Active Substance: ONDANSETRON
     Dosage: 88/ 8H FOR 3 DAYS AFTER TREATMENT
  2. TENOFOVIR [Concomitant]
     Active Substance: TENOFOVIR
     Dosage: 300 MG, QD
  3. NEULASTIM [Suspect]
     Active Substance: PEGFILGRASTIM
     Indication: PRODUCT USED FOR UNKNOWN INDICATION
     Dosage: 6 MG, UNK
     Route: 058
     Dates: start: 20180223
  4. MABTHERA [Concomitant]
     Active Substance: RITUXIMAB
     Indication: METASTASIS
     Dosage: 842.25 MG, UNK
     Route: 042
     Dates: start: 20180219
  5. FAULDCISPLA [Concomitant]
     Active Substance: CISPLATIN
     Indication: METASTASIS
     Dosage: 96.15 MG, UNK
     Route: 042
     Dates: start: 20180219
  6. NEOSORO [Concomitant]
     Dosage: UNK UNK, AS NECESSARY
  7. BROMOPRIDE [Concomitant]
     Active Substance: BROMOPRIDE
     Dosage: 10 MG, AS NECESSARY
  8. FAULDCITA [Concomitant]
     Active Substance: CYTARABINE
     Indication: METASTASIS
     Dosage: 4492 MG, UNK
     Route: 042
     Dates: start: 20180220
  9. DIPYRONE [Concomitant]
     Active Substance: DIPYRONE
     Dosage: 1 G, AS NECESSARY
  10. TRAMAL [Concomitant]
     Active Substance: TRAMADOL
     Dosage: 50 MG,  6 / 6H

REACTIONS (1)
  - Febrile neutropenia [Recovered/Resolved]

NARRATIVE: CASE EVENT DATE: 20180330
